FAERS Safety Report 21877097 (Version 1)
Quarter: 2023Q1

REPORT INFORMATION
  Report Type: Spontaneous
  Country: GB (occurrence: GB)
  Receive Date: 20230118
  Receipt Date: 20230118
  Transmission Date: 20230417
  Serious: Yes (Hospitalization, Other)
  Sender: FDA-Public Use
  Company Number: GB-BAXTER-2023BAX010366

PATIENT
  Age: 62 Year
  Sex: Female

DRUGS (1)
  1. EXTRANEAL [Suspect]
     Active Substance: CALCIUM CHLORIDE\ICODEXTRIN\MAGNESIUM CHLORIDE\SODIUM CHLORIDE\SODIUM LACTATE
     Indication: Peritoneal dialysis
     Dosage: 2L BAG
     Route: 033

REACTIONS (3)
  - Peritoneal dialysis complication [Unknown]
  - Chest discomfort [Unknown]
  - Dyspnoea [Unknown]

NARRATIVE: CASE EVENT DATE: 20230109
